FAERS Safety Report 21107514 (Version 1)
Quarter: 2022Q3

REPORT INFORMATION
  Report Type: Report from Study
  Country: US (occurrence: US)
  Receive Date: 20220720
  Receipt Date: 20220720
  Transmission Date: 20221027
  Serious: Yes (Hospitalization, Other)
  Sender: FDA-Public Use
  Company Number: US-BRISTOL-MYERS SQUIBB COMPANY-BMS-2020-113681

PATIENT
  Age: 77 Year
  Sex: Female
  Weight: 73 kg

DRUGS (21)
  1. FENOFIBRATE [Concomitant]
     Active Substance: FENOFIBRATE
     Indication: Hyperlipidaemia
     Dosage: 72.5 MILLIGRAM, QD
     Route: 048
     Dates: start: 2018
  2. ATORVASTATIN [Concomitant]
     Active Substance: ATORVASTATIN
     Indication: Hyperlipidaemia
     Dosage: 10 MILLIGRAM, QD
     Route: 048
     Dates: start: 2018
  3. ASPIRIN [Concomitant]
     Active Substance: ASPIRIN
     Indication: Thrombosis prophylaxis
     Dosage: 81 MILLIGRAM, QD
     Route: 048
     Dates: start: 2004, end: 20201102
  4. MINERALS\VITAMINS [Concomitant]
     Active Substance: MINERALS\VITAMINS
     Indication: Mineral supplementation
     Dosage: 1 DF= 1 SOFT GEL
     Route: 065
     Dates: start: 201404
  5. VITAMIN D3 [Concomitant]
     Active Substance: CHOLECALCIFEROL
     Indication: Supplementation therapy
     Dosage: 125 MILLIGRAM, QD
     Route: 048
     Dates: start: 201708
  6. HERBALS\LINSEED OIL [Concomitant]
     Active Substance: HERBALS\LINSEED OIL
     Indication: Supplementation therapy
     Dosage: 1400 MILLIGRAM, QD
     Route: 048
     Dates: start: 201708
  7. MORINGA [MORINGA OLEIFERA] [Concomitant]
     Indication: Supplementation therapy
     Dosage: 100 MILLIGRAM, BID
     Route: 048
     Dates: start: 2016
  8. DICLOFENAC 1% TOPICAL GEL [Concomitant]
     Indication: Arthralgia
     Route: 061
     Dates: start: 20201112, end: 20201123
  9. GABAPENTIN [Concomitant]
     Active Substance: GABAPENTIN
     Indication: Arthralgia
     Route: 048
     Dates: start: 20201112, end: 20201116
  10. MORPHINE [Concomitant]
     Active Substance: MORPHINE
     Indication: Arthralgia
     Dosage: FREQUENCY: AS NECCESSARY
     Route: 042
     Dates: start: 20201112, end: 20201116
  11. NITROSTAT [Concomitant]
     Active Substance: NITROGLYCERIN
     Indication: Arthralgia
     Dosage: FREQUENCY: AS NECESSARY
     Route: 048
     Dates: start: 20201112, end: 20201116
  12. FAMOTIDINE [Concomitant]
     Active Substance: FAMOTIDINE
     Indication: Abdominal discomfort
     Route: 048
     Dates: start: 20201112, end: 20201116
  13. Sodium chloride 0.9% normal saline drip [Concomitant]
     Indication: Acute kidney injury
     Dosage: 1000 MILLILITER;CM3?FREQUENCY: AS NECESSARY
     Route: 042
     Dates: start: 20201112, end: 20201114
  14. ZOFRAN [Concomitant]
     Active Substance: ONDANSETRON HYDROCHLORIDE
     Indication: Nausea
     Route: 048
     Dates: start: 20201112, end: 20201116
  15. DILTIAZEM [Concomitant]
     Active Substance: DILTIAZEM
     Indication: Atrial fibrillation
     Route: 048
     Dates: start: 20201105, end: 20201203
  16. METOPROLOL SUCCINATE [Concomitant]
     Active Substance: METOPROLOL SUCCINATE
     Indication: Atrial fibrillation
     Route: 048
     Dates: start: 20201105
  17. RIVAROXABAN [Concomitant]
     Active Substance: RIVAROXABAN
     Indication: Atrial fibrillation
     Route: 048
     Dates: start: 20201105
  18. RIVAROXABAN [Concomitant]
     Active Substance: RIVAROXABAN
     Route: 048
     Dates: start: 20201102, end: 20201104
  19. ACETAMINOPHEN [Concomitant]
     Active Substance: ACETAMINOPHEN
     Indication: Back pain
     Dosage: FREQUENCY: EVERY 6HRS PRN
     Route: 048
     Dates: start: 20201103, end: 20201105
  20. METOPROLOL TARTRATE [Concomitant]
     Active Substance: METOPROLOL TARTRATE
     Indication: Atrial fibrillation
     Route: 048
     Dates: start: 20201102, end: 20201105
  21. Sodium chloride 0.9% (Flush) [Concomitant]
     Indication: Dehydration
     Dosage: 3 MILLILITER;CM3
     Route: 042
     Dates: start: 20201102, end: 20201103

REACTIONS (3)
  - Ejection fraction decreased [Recovered/Resolved]
  - Atrial fibrillation [Recovered/Resolved]
  - Acute kidney injury [Recovered/Resolved]

NARRATIVE: CASE EVENT DATE: 20201102
